FAERS Safety Report 4629466-9 (Version None)
Quarter: 2005Q2

REPORT INFORMATION
  Report Type: 
  Country: None (occurrence: None)
  Receive Date: 20050405
  Receipt Date: 20050323
  Transmission Date: 20051028
  Serious: Yes (Other)
  Sender: FDA-Public Use
  Company Number: 2005049990

PATIENT
  Age: 73 Year
  Sex: Male

DRUGS (3)
  1. LIPITOR [Suspect]
     Indication: PROPHYLAXIS
     Dosage: 10 MG (10 MG, 1 IN 1 D), ORAL
     Route: 048
  2. CANDESARTAN CILEXETIL           (CANDESARTAN CILEXETIL) [Concomitant]
  3. ACE INHIBITOR NOS (ACE INHIBITOR NOS) [Concomitant]

REACTIONS (4)
  - BLOOD LACTIC ACID INCREASED [None]
  - LUNG NEOPLASM MALIGNANT [None]
  - MUSCLE SPASMS [None]
  - NEOPLASM [None]
